FAERS Safety Report 6015568-1 (Version None)
Quarter: 2008Q4

REPORT INFORMATION
  Report Type: 
  Country: None (occurrence: None)
  Receive Date: 20081222
  Receipt Date: 20081215
  Transmission Date: 20090506
  Serious: Yes (Death)
  Sender: FDA-Public Use
  Company Number: US-PFIZER INC-2008153626

PATIENT
  Age: 89 Year
  Sex: Female

DRUGS (5)
  1. AMLODIPINE MALEATE/ BENAZEPRIL HYDROCHLORIDE [Suspect]
     Route: 048
  2. ISOSORBIDE DINITRATE [Suspect]
     Route: 048
  3. PHENYTOIN [Suspect]
     Route: 048
  4. FEXOFENADINE [Suspect]
     Route: 048
  5. FLUVASTATIN [Suspect]
     Route: 048

REACTIONS (1)
  - MEDICATION ERROR [None]
